FAERS Safety Report 9881028 (Version 1)
Quarter: 2014Q1

REPORT INFORMATION
  Report Type: Spontaneous
  Country: BE (occurrence: BE)
  Receive Date: 20140207
  Receipt Date: 20140207
  Transmission Date: 20141002
  Serious: Yes (Other)
  Sender: FDA-Public Use
  Company Number: BE-ASTELLAS-2014EU000896

PATIENT
  Age: 49 Year
  Sex: Male
  Weight: 78 kg

DRUGS (4)
  1. PROGRAF [Suspect]
     Indication: RENAL AND PANCREAS TRANSPLANT
     Dosage: 0.1 MG/KG, UNKNOWN/D
     Route: 048
  2. ANTITHYMOCYTE IMMUNOGLOBULIN [Suspect]
     Indication: IMMUNOSUPPRESSION
     Dosage: 4 MG/KG, UNKNOWN/D
     Route: 042
  3. METHYLPREDNISOLONE [Suspect]
     Indication: IMMUNOSUPPRESSION
     Dosage: 500 MG, UNKNOWN/D
     Route: 042
  4. CELLCEPT /01275102/ [Suspect]
     Indication: IMMUNOSUPPRESSION
     Dosage: 2 G, UNKNOWN/D
     Route: 048

REACTIONS (5)
  - Off label use [Unknown]
  - Abdominal compartment syndrome [Unknown]
  - Oliguria [Unknown]
  - Transplant rejection [Recovered/Resolved]
  - Hernia [Recovered/Resolved]
